FAERS Safety Report 7309285-5 (Version None)
Quarter: 2011Q1

REPORT INFORMATION
  Report Type: 
  Country: None (occurrence: None)
  Receive Date: 20110223
  Receipt Date: 20110212
  Transmission Date: 20110831
  Serious: Yes (Hospitalization)
  Sender: FDA-Public Use
  Company Number: DE-ROCHE-759102

PATIENT
  Sex: Female
  Weight: 83 kg

DRUGS (15)
  1. RIBAVIRIN [Suspect]
     Route: 048
     Dates: start: 20101125
  2. PANTOZOL [Concomitant]
     Route: 048
  3. POLAMIDON [Concomitant]
     Indication: DRUG WITHDRAWAL MAINTENANCE THERAPY
     Route: 048
  4. RIBAVIRIN [Suspect]
     Route: 048
     Dates: start: 20101028, end: 20101124
  5. PEGINTERFERON ALFA-2A [Suspect]
     Route: 058
     Dates: start: 20101028
  6. CERTICAN [Concomitant]
     Route: 048
  7. SEMPERA [Concomitant]
     Route: 048
  8. BATRAFEN [Concomitant]
  9. LACTULOSE [Concomitant]
     Dosage: WHEN REQUIRED
  10. ARANESP [Concomitant]
     Route: 058
  11. URSO FALK [Concomitant]
     Route: 048
  12. IDEOS [Concomitant]
     Route: 048
  13. CIPRALEX [Concomitant]
     Route: 048
  14. NEUPOGEN [Concomitant]
     Dosage: IF REQUIRED AFTER CONSULTATION
     Route: 058
  15. VENLAFAXINE [Concomitant]
     Route: 048

REACTIONS (4)
  - HAEMOLYSIS [None]
  - ANAEMIA [None]
  - PYREXIA [None]
  - INFECTION [None]
